FAERS Safety Report 10948349 (Version 1)
Quarter: 2015Q1

REPORT INFORMATION
  Report Type: Spontaneous
  Country: US (occurrence: None)
  Receive Date: 20150320
  Receipt Date: 20150320
  Transmission Date: 20150721
  Serious: Yes (Other)
  Sender: FDA-Public Use
  Company Number: COL_19368_2015

PATIENT
  Sex: Female

DRUGS (2)
  1. TOM^S MOUTHWASH WICKED FRESH PEPPERMINT WAVE [Suspect]
     Active Substance: COSMETICS
     Indication: PRODUCT USED FOR UNKNOWN INDICATION
     Dosage: CAPFUL
     Route: 048
     Dates: start: 20150307, end: 20150307
  2. PEPPERMINT OIL [Suspect]
     Active Substance: PEPPERMINT OIL

REACTIONS (3)
  - Throat irritation [None]
  - Asthma [None]
  - Hypersensitivity [None]

NARRATIVE: CASE EVENT DATE: 20150307
